FAERS Safety Report 13034331 (Version 1)
Quarter: 2016Q4

REPORT INFORMATION
  Report Type: Spontaneous
  Country: US (occurrence: US)
  Receive Date: 20161215
  Receipt Date: 20161215
  Transmission Date: 20170207
  Serious: Yes (Disabling, Other)
  Sender: FDA-Public Use
  Company Number: None

PATIENT
  Age: 32 Year
  Sex: Female
  Weight: 91.8 kg

DRUGS (5)
  1. CIPROFLOXACIN 500 MG TABLETS, 500 MG AUROBINDO [Suspect]
     Active Substance: CIPROFLOXACIN
     Indication: KIDNEY INFECTION
     Dosage: ?          QUANTITY:20 TABLET(S);?
     Route: 048
     Dates: start: 20161207, end: 20161215
  2. ATIVAN [Concomitant]
     Active Substance: LORAZEPAM
  3. VALACYCLOVIR [Concomitant]
     Active Substance: VALACYCLOVIR HYDROCHLORIDE
  4. RITALIN LA [Concomitant]
     Active Substance: METHYLPHENIDATE HYDROCHLORIDE
  5. PAROXETINE. [Concomitant]
     Active Substance: PAROXETINE

REACTIONS (10)
  - Agitation [None]
  - Hallucination, visual [None]
  - Nausea [None]
  - Paranoia [None]
  - Suicidal ideation [None]
  - Rash [None]
  - Vision blurred [None]
  - Anxiety [None]
  - Restlessness [None]
  - Nightmare [None]

NARRATIVE: CASE EVENT DATE: 20161210
